FAERS Safety Report 7220423-5 (Version None)
Quarter: 2011Q1

REPORT INFORMATION
  Report Type: 
  Country: None (occurrence: None)
  Receive Date: 20110111
  Receipt Date: 20110106
  Transmission Date: 20110831
  Serious: Yes (Other)
  Sender: FDA-Public Use
  Company Number: US-ABBOTT-11P-163-0695591-00

PATIENT
  Sex: Female
  Weight: 70.37 kg

DRUGS (8)
  1. COZAAR [Concomitant]
     Indication: HYPERTENSION
  2. ALDACTONE [Concomitant]
     Indication: HYPERTENSION
  3. PREDNISONE [Concomitant]
     Indication: RHEUMATOID ARTHRITIS
  4. ZOCOR [Concomitant]
     Indication: BLOOD CHOLESTEROL INCREASED
  5. HUMIRA [Suspect]
     Indication: RHEUMATOID ARTHRITIS
     Dates: start: 20050101
  6. COREG [Concomitant]
     Indication: HYPERTENSION
  7. MULTIPLE VITAMINS [Concomitant]
     Indication: VITAMIN SUPPLEMENTATION
  8. ASPIRIN [Concomitant]
     Indication: CARDIAC DISORDER

REACTIONS (6)
  - URINARY TRACT INFECTION [None]
  - DIARRHOEA [None]
  - DEHYDRATION [None]
  - FEELING ABNORMAL [None]
  - HEPATIC ENZYME INCREASED [None]
  - CHILLS [None]
